FAERS Safety Report 4646335-9 (Version None)
Quarter: 2005Q2

REPORT INFORMATION
  Report Type: 
  Country: None (occurrence: None)
  Receive Date: 20050427
  Receipt Date: 20040330
  Transmission Date: 20051028
  Serious: Yes (Hospitalization)
  Sender: FDA-Public Use
  Company Number: PHBS2004JP04391

PATIENT
  Age: 66 Year
  Sex: Female

DRUGS (11)
  1. GLEEVEC [Suspect]
     Indication: GASTROINTESTINAL STROMAL TUMOUR
     Dosage: 400 MG, QD
     Route: 048
     Dates: start: 20040218, end: 20040319
  2. GLEEVEC [Suspect]
     Dosage: 200 MG, QD
     Route: 048
     Dates: start: 20040320, end: 20040401
  3. GLEEVEC [Suspect]
     Dosage: 300 MG, QD
     Route: 048
     Dates: start: 20040402, end: 20040430
  4. GLEEVEC [Suspect]
     Dosage: 200 MG, QD
     Route: 048
     Dates: start: 20040501, end: 20041002
  5. GLEEVEC [Suspect]
     Dosage: 200 MG, QD
     Route: 048
     Dates: start: 20041016
  6. NAUZELIN [Concomitant]
     Dosage: 3 DF/D
     Route: 048
     Dates: end: 20040228
  7. DEPAS [Concomitant]
     Dosage: 1 DF/D
     Route: 048
     Dates: end: 20040301
  8. NORVASC [Concomitant]
     Dosage: 2.5 G/D
     Route: 048
     Dates: end: 20040301
  9. BIO THREE [Concomitant]
     Dosage: 1 DF/D
     Route: 048
     Dates: end: 20040301
  10. MYSLEE [Concomitant]
     Dosage: 1 DF/D
     Route: 048
     Dates: end: 20040301
  11. DAI-KENCHU-TO [Concomitant]
     Dosage: 7.5 G/D
     Route: 048
     Dates: end: 20040301

REACTIONS (3)
  - DRUG ERUPTION [None]
  - EOSINOPHIL COUNT INCREASED [None]
  - RASH [None]
